FAERS Safety Report 9295113 (Version 1)
Quarter: 2013Q1

REPORT INFORMATION
  Report Type: Spontaneous
  Country: US (occurrence: None)
  Receive Date: 20121227
  Receipt Date: 20121227
  Transmission Date: 20140127
  Serious: No
  Sender: FDA-Public Use
  Company Number: PHEH2012US021822

PATIENT
  Age: 52 Year
  Sex: Male

DRUGS (13)
  1. AFINITOR [Suspect]
     Indication: TUBEROUS SCLEROSIS
     Route: 048
     Dates: start: 20120929
  2. CALCITROL (CALCIUM CARBONATE, ERGOCALCIFEROL, RETINOL) [Concomitant]
  3. PHOSPHOLOW (CALCIUM ACETATE) [Concomitant]
  4. SYNTHROID (LEVOTHYROXINE SODIUM) [Concomitant]
  5. ZYPREXA (OLANZAPINE) [Concomitant]
  6. TOPAMAX (TOPIRAMATE) [Concomitant]
  7. METROGEL (METRONIDAZOLE) GEL, 1% [Concomitant]
  8. VIMPAT (LACOSAMIDE) [Concomitant]
  9. BANZEL (RUFINAMIDE) [Concomitant]
  10. TEMAZEPAM (TEMAZEPAM) [Concomitant]
  11. NIZORAL (KETOCONAZOLE) [Concomitant]
  12. OMEPRAZOLE (OMEPRAZOLE) [Concomitant]
  13. DOXYCYCLINE (DOXYCLCLINE) [Concomitant]

REACTIONS (1)
  - Drug level decreased [None]
